FAERS Safety Report 24996803 (Version 1)
Quarter: 2025Q1

REPORT INFORMATION
  Report Type: Spontaneous
  Country: US (occurrence: US)
  Receive Date: 20250221
  Receipt Date: 20250221
  Transmission Date: 20250408
  Serious: No
  Sender: MYLAN
  Company Number: US-MYLANLABS-2025M1013871

PATIENT
  Sex: Female

DRUGS (1)
  1. BREYNA [Suspect]
     Active Substance: BUDESONIDE\FORMOTEROL FUMARATE
     Indication: Asthma
     Dosage: 320/9 MILLIGRAM, PM (APPLIED TWO PUFFS BY MOUTH IN THE EVENING)
     Route: 055

REACTIONS (3)
  - Off label use [Unknown]
  - Wrong technique in device usage process [Unknown]
  - Device delivery system issue [Unknown]
